FAERS Safety Report 16428909 (Version 2)
Quarter: 2019Q2

REPORT INFORMATION
  Report Type: Spontaneous
  Country: US (occurrence: US)
  Receive Date: 20190613
  Receipt Date: 20190618
  Transmission Date: 20190711
  Serious: No
  Sender: FDA-Public Use
  Company Number: US-009507513-1906USA004948

PATIENT
  Age: 61 Year
  Sex: Female

DRUGS (3)
  1. CEFTIN [Concomitant]
     Active Substance: CEFUROXIME AXETIL
  2. STEGLATRO [Suspect]
     Active Substance: ERTUGLIFLOZIN PIDOLATE
     Indication: TYPE 2 DIABETES MELLITUS
     Dosage: ONE TABLET DAILY
     Route: 048
     Dates: start: 201903
  3. METFORMIN [Concomitant]
     Active Substance: METFORMIN HYDROCHLORIDE

REACTIONS (1)
  - Genital discomfort [Not Recovered/Not Resolved]

NARRATIVE: CASE EVENT DATE: 20190609
